FAERS Safety Report 4352362-1 (Version None)
Quarter: 2004Q2

REPORT INFORMATION
  Report Type: 
  Country: None (occurrence: None)
  Receive Date: 20040423
  Receipt Date: 20030929
  Transmission Date: 20050107
  Serious: Yes (Other)
  Sender: FDA-Public Use
  Company Number: CIP03002739

PATIENT
  Age: 75 Year
  Sex: Male

DRUGS (1)
  1. MACROBID [Suspect]
     Indication: PROPHYLAXIS
     Dosage: 100 MG DAILY, ORAL
     Route: 048
     Dates: start: 20001201, end: 20030501

REACTIONS (2)
  - CHEST PAIN [None]
  - PULMONARY FIBROSIS [None]
